FAERS Safety Report 24582425 (Version 2)
Quarter: 2024Q4

REPORT INFORMATION
  Report Type: Spontaneous
  Country: JP (occurrence: JP)
  Receive Date: 20241106
  Receipt Date: 20241119
  Transmission Date: 20250115
  Serious: No
  Sender: NOVO NORDISK
  Company Number: JP-NOVOPROD-1292058

PATIENT
  Age: 39 Year
  Sex: Female
  Weight: 74 kg

DRUGS (2)
  1. LEVEMIR [Suspect]
     Active Substance: INSULIN DETEMIR
     Indication: Gestational diabetes
     Dosage: UNK
     Dates: start: 20211029, end: 20211217
  2. HUMALOG [Concomitant]
     Active Substance: INSULIN LISPRO
     Indication: Gestational diabetes
     Dosage: UNK

REACTIONS (5)
  - Injection site induration [Recovered/Resolved]
  - Injection site erythema [Recovered/Resolved]
  - Injection site pruritus [Recovered/Resolved]
  - Injection site rash [Recovered/Resolved]
  - Maternal exposure during pregnancy [Recovered/Resolved]

NARRATIVE: CASE EVENT DATE: 20211119
